FAERS Safety Report 6625435-8 (Version None)
Quarter: 2010Q1

REPORT INFORMATION
  Report Type: 
  Country: None (occurrence: None)
  Receive Date: 20100310
  Receipt Date: 20090825
  Transmission Date: 20100710
  Serious: No
  Sender: FDA-Public Use
  Company Number: US-BIOGENIDEC-2009BI027248

PATIENT
  Age: 55 Year
  Sex: Female

DRUGS (3)
  1. AVONEX [Suspect]
     Indication: MULTIPLE SCLEROSIS
     Route: 030
     Dates: start: 19980101, end: 20030801
  2. AVONEX [Suspect]
     Route: 030
     Dates: start: 20030901, end: 20080316
  3. OMNIPRED [Concomitant]
     Indication: CATARACT
     Route: 047

REACTIONS (1)
  - CATARACT [None]
